FAERS Safety Report 8565187 (Version 4)
Quarter: 2013Q4

REPORT INFORMATION
  Report Type: Spontaneous
  Country: US (occurrence: None)
  Receive Date: 20120315
  Receipt Date: 20131226
  Transmission Date: 20140711
  Serious: Yes (Other)
  Sender: FDA-Public Use
  Company Number: PHHY2011US34948

PATIENT
  Age: 30 Year
  Sex: Female

DRUGS (1)
  1. GILENYA [Suspect]
     Indication: MULTIPLE SCLEROSIS
     Route: 048
     Dates: start: 20110204

REACTIONS (9)
  - Incorrect dose administered [None]
  - Nausea [None]
  - Malaise [None]
  - Dizziness [None]
  - Balance disorder [None]
  - Vomiting [None]
  - Cough [None]
  - Diarrhoea [None]
  - Inappropriate schedule of drug administration [None]
